FAERS Safety Report 16661746 (Version 1)
Quarter: 2019Q3

REPORT INFORMATION
  Report Type: Spontaneous
  Country: JP (occurrence: JP)
  Receive Date: 20190802
  Receipt Date: 20190802
  Transmission Date: 20191004
  Serious: Yes (Other)
  Sender: FDA-Public Use
  Company Number: JP-PFIZER INC-2019320354

PATIENT

DRUGS (2)
  1. METHOTREXATE. [Suspect]
     Active Substance: METHOTREXATE
  2. BUCILLAMINE [Concomitant]
     Active Substance: BUCILLAMINE

REACTIONS (3)
  - Takayasu^s arteritis [Unknown]
  - Pulmonary tuberculosis [Unknown]
  - Tuberculosis [Unknown]
